FAERS Safety Report 5018705-0 (Version None)
Quarter: 2006Q2

REPORT INFORMATION
  Report Type: 
  Country: None (occurrence: None)
  Receive Date: 20060606
  Receipt Date: 20050325
  Transmission Date: 20061013
  Serious: Yes (Hospitalization)
  Sender: FDA-Public Use
  Company Number: FR-ROCHE-399591

PATIENT
  Age: 44 Year
  Sex: Female
  Weight: 66 kg

DRUGS (5)
  1. ZENAPAX [Suspect]
     Route: 048
     Dates: start: 20050202, end: 20050202
  2. ZENAPAX [Suspect]
     Route: 048
     Dates: start: 20050216, end: 20050216
  3. MYCOPHENOLATE MOFETIL [Suspect]
     Route: 048
     Dates: start: 20050202
  4. CYCLOSPORINE [Suspect]
     Route: 048
     Dates: start: 20050204
  5. CORTANCYL [Suspect]
     Route: 048
     Dates: start: 20050203

REACTIONS (2)
  - CYTOMEGALOVIRUS INFECTION [None]
  - DISEASE RECURRENCE [None]
